FAERS Safety Report 4372958-0 (Version None)
Quarter: 2004Q2

REPORT INFORMATION
  Report Type: 
  Country: None (occurrence: None)
  Receive Date: 20040603
  Receipt Date: 20040525
  Transmission Date: 20050107
  Serious: Yes (Death, Hospitalization, Other)
  Sender: FDA-Public Use
  Company Number: TPG2004A00103

PATIENT
  Age: 77 Year
  Sex: Female

DRUGS (6)
  1. ACTOS [Suspect]
     Indication: DIABETES MELLITUS NON-INSULIN-DEPENDENT
     Dosage: 30 MG (30 MG, 1 IN 1 D)
     Route: 048
     Dates: start: 20030728
  2. AMARYL [Concomitant]
  3. CAPTOHEXAL COMP (CAPOZIDE) [Concomitant]
  4. ASS RATIOPHARM (ACETYLSALICYLIC ACID) [Concomitant]
  5. NORVASC [Concomitant]
  6. CARBIMAZOL HENNING (CARBIMAZOLE) [Concomitant]

REACTIONS (6)
  - ARTERIAL STENOSIS LIMB [None]
  - CARDIAC FAILURE ACUTE [None]
  - CEREBRAL INFARCTION [None]
  - HEMIPARESIS [None]
  - RENAL FAILURE ACUTE [None]
  - SEPSIS [None]
